FAERS Safety Report 7833518-X (Version None)
Quarter: 2011Q4

REPORT INFORMATION
  Report Type: 
  Country: None (occurrence: None)
  Receive Date: 20111024
  Receipt Date: 20110812
  Transmission Date: 20120403
  Serious: Yes (Other)
  Sender: FDA-Public Use
  Company Number: US-BAYER-201032529NA

PATIENT
  Sex: Male

DRUGS (1)
  1. MAGNEVIST [Suspect]

REACTIONS (1)
  - NEPHROGENIC SYSTEMIC FIBROSIS [None]
